FAERS Safety Report 5199225-X (Version None)
Quarter: 2006Q4

REPORT INFORMATION
  Report Type: 
  Country: None (occurrence: None)
  Receive Date: 20061016
  Receipt Date: 20060622
  Transmission Date: 20070319
  Serious: No
  Sender: FDA-Public Use
  Company Number: 2006SP002504

PATIENT
  Age: 31 Year
  Sex: Male

DRUGS (2)
  1. LUNESTA [Suspect]
     Indication: INSOMNIA
     Dosage: 2MG;HS;ORAL
     Route: 048
     Dates: start: 20060127, end: 20060203
  2. PREVACID [Concomitant]

REACTIONS (2)
  - ABNORMAL DREAMS [None]
  - MIDDLE INSOMNIA [None]
